FAERS Safety Report 14120370 (Version 1)
Quarter: 2017Q4

REPORT INFORMATION
  Report Type: Spontaneous
  Country: GB (occurrence: GB)
  Receive Date: 20171024
  Receipt Date: 20171024
  Transmission Date: 20180321
  Serious: Yes (Other)
  Sender: FDA-Public Use
  Company Number: GB-PFIZER INC-2017455898

PATIENT
  Age: 29 Year
  Sex: Female
  Weight: 49 kg

DRUGS (6)
  1. LAXIDO [Concomitant]
     Active Substance: POLYETHYLENE GLYCOL 3350\POTASSIUM CHLORIDE\SODIUM BICARBONATE\SODIUM CHLORIDE
     Dosage: 1 DF, 1X/DAY
     Dates: start: 20130705, end: 20170712
  2. DOXYCYCLINE MONOHYDRATE [Suspect]
     Active Substance: DOXYCYCLINE
     Dosage: 100 MG, UNK
     Dates: start: 20170925
  3. LIDOCAINE. [Concomitant]
     Active Substance: LIDOCAINE
     Dosage: 1 DF, 2X/DAY APPLIED
     Dates: start: 20130705, end: 20170712
  4. FERROUS FUMARATE [Concomitant]
     Active Substance: FERROUS FUMARATE
     Dosage: 1 DF, 3X/DAY
     Dates: start: 20170807, end: 20170904
  5. CLARITHROMYCIN. [Concomitant]
     Active Substance: CLARITHROMYCIN
     Dosage: 1 DF, UNK
     Dates: start: 20170925, end: 20171002
  6. RIGEVIDON (28) [Concomitant]
     Dosage: 1 DF, (AS DIRECTED)
     Dates: start: 20150115

REACTIONS (2)
  - Skin lesion [Unknown]
  - Dermatitis allergic [Recovered/Resolved]

NARRATIVE: CASE EVENT DATE: 20171011
